FAERS Safety Report 6987238-4 (Version None)
Quarter: 2010Q3

REPORT INFORMATION
  Report Type: 
  Country: None (occurrence: None)
  Receive Date: 20100827
  Receipt Date: 20100202
  Transmission Date: 20110219
  Serious: Yes (Hospitalization)
  Sender: FDA-Public Use
  Company Number: AMAG201000067

PATIENT
  Sex: Female

DRUGS (2)
  1. FERAHEME [Suspect]
     Indication: IRON DEFICIENCY ANAEMIA
     Dosage: 510 MG, SINGLE, INTRAVENOUS ; 510 MG, SINGLE, INTRAVENOUS
     Route: 042
     Dates: start: 20100128, end: 20100128
  2. FERAHEME [Suspect]
     Indication: IRON DEFICIENCY ANAEMIA
     Dosage: 510 MG, SINGLE, INTRAVENOUS ; 510 MG, SINGLE, INTRAVENOUS
     Route: 042
     Dates: end: 20100202

REACTIONS (2)
  - DYSPNOEA [None]
  - HEADACHE [None]
